FAERS Safety Report 7944591-2 (Version None)
Quarter: 2011Q4

REPORT INFORMATION
  Report Type: 
  Country: None (occurrence: None)
  Receive Date: 20111114
  Receipt Date: 20111004
  Transmission Date: 20120403
  Serious: No
  Sender: FDA-Public Use
  Company Number: 1000024564

PATIENT
  Age: 35 Year
  Sex: Female

DRUGS (8)
  1. SAVELLA [Suspect]
     Indication: FIBROMYALGIA
     Dosage: 50 MG (25 MG, 2 IN 1 D), ORAL
     Route: 048
     Dates: start: 20111002, end: 20111001
  2. SKELAXIN (METAXALONE) (METAXALONE) [Concomitant]
  3. YASMIN (DROSPIRENONE W/ETHINYLESTRADIOL) (DROSPIRENONE W/ETHINYLESTRAD [Concomitant]
  4. NEXIUM [Concomitant]
  5. SYNTHROID (LEVOTHYROXCINE SODIUM)  (LEVOTHYROXCINE SODIUM) [Concomitant]
  6. SAVELLA [Suspect]
     Indication: FIBROMYALGIA
     Dosage: 12.5 MG (12.5 MG, 1 IN 1 D), ORAL; 25 MG (12.5 MG, 2 IN 1 D), ORAL
     Route: 048
     Dates: start: 20110930, end: 20111001
  7. SAVELLA [Suspect]
     Indication: FIBROMYALGIA
     Dosage: 12.5 MG (12.5 MG, 1 IN 1 D), ORAL; 25 MG (12.5 MG, 2 IN 1 D), ORAL
     Route: 048
     Dates: start: 20110929, end: 20110929
  8. JANUMET (RISTFOR) (RISTFOR) [Concomitant]

REACTIONS (1)
  - NAUSEA [None]
